FAERS Safety Report 7074074-6 (Version None)
Quarter: 2010Q4

REPORT INFORMATION
  Report Type: 
  Country: None (occurrence: None)
  Receive Date: 20101029
  Receipt Date: 20101018
  Transmission Date: 20110411
  Serious: Yes (Other)
  Sender: FDA-Public Use
  Company Number: JP-PFIZER INC-2010132152

PATIENT
  Age: 69 Year
  Sex: Male

DRUGS (3)
  1. LYRICA [Suspect]
     Indication: PAIN
     Dosage: 150 MG/DAY
     Route: 048
     Dates: start: 20101004
  2. LANDSEN [Concomitant]
     Route: 048
  3. DEPAS [Concomitant]
     Route: 048

REACTIONS (1)
  - GASTRIC ULCER [None]
